FAERS Safety Report 4534247-0 (Version None)
Quarter: 2004Q4

REPORT INFORMATION
  Report Type: 
  Country: None (occurrence: None)
  Receive Date: 20041222
  Receipt Date: 20041214
  Transmission Date: 20050328
  Serious: Yes (Hospitalization)
  Sender: FDA-Public Use
  Company Number: 200414703FR

PATIENT
  Sex: Male

DRUGS (1)
  1. ARAVA [Suspect]
     Route: 048

REACTIONS (4)
  - CARDIAC FAILURE [None]
  - LUNG INFECTION [None]
  - LYMPHOPENIA [None]
  - WEIGHT DECREASED [None]
